FAERS Safety Report 9341770 (Version 1)
Quarter: 2013Q2

REPORT INFORMATION
  Report Type: Spontaneous
  Country: FR (occurrence: FR)
  Receive Date: 20130611
  Receipt Date: 20130611
  Transmission Date: 20140414
  Serious: Yes (Hospitalization, Other)
  Sender: FDA-Public Use
  Company Number: FR-JNJFOC-20130603190

PATIENT
  Age: 76 Year
  Sex: Male

DRUGS (12)
  1. XARELTO [Suspect]
     Indication: ATRIAL FIBRILLATION
     Route: 048
     Dates: start: 201303, end: 201305
  2. XARELTO [Suspect]
     Indication: CEREBROVASCULAR ACCIDENT PROPHYLAXIS
     Route: 048
     Dates: start: 201303, end: 201305
  3. TOPALGIC [Concomitant]
     Dosage: THRICE DAILY IF PAIN
     Route: 065
  4. KARDEGIC [Concomitant]
     Dosage: ONCE IN MORNING
     Route: 065
  5. TAHOR [Concomitant]
     Dosage: ONCE IN EVENING
     Route: 065
  6. LASILIX [Concomitant]
     Route: 065
  7. DAFALGAN [Concomitant]
     Route: 065
  8. INEXIUM [Concomitant]
     Dosage: ONCE EVENING
     Route: 065
  9. PYOSTACINE [Concomitant]
     Route: 065
  10. BISOPROLOL [Concomitant]
     Dosage: ONCE IN MORNING
     Route: 065
  11. ALDACTONE [Concomitant]
     Dosage: ONCE IN MORNING
     Route: 065
  12. AERIUS [Concomitant]
     Dosage: ONCE IN EVENING
     Route: 065

REACTIONS (1)
  - Skin necrosis [Recovering/Resolving]
